FAERS Safety Report 9925812 (Version 5)
Quarter: 2014Q2

REPORT INFORMATION
  Report Type: Report from Study
  Country: AU (occurrence: AU)
  Receive Date: 20140226
  Receipt Date: 20140429
  Transmission Date: 20141212
  Serious: Yes (Hospitalization)
  Sender: FDA-Public Use
  Company Number: AU-TEVA-462103USA

PATIENT
  Age: 75 Year
  Sex: Female
  Weight: 74.3 kg

DRUGS (11)
  1. BENDAMUSTINE [Suspect]
     Indication: NON-HODGKIN^S LYMPHOMA
     Route: 042
     Dates: start: 20131205, end: 20131206
  2. BENDAMUSTINE [Suspect]
     Indication: NON-HODGKIN^S LYMPHOMA
     Route: 042
     Dates: start: 20140102, end: 20140103
  3. BENDAMUSTINE [Suspect]
     Dosage: 218 MILLIGRAM DAILY;
     Route: 042
     Dates: start: 20140123, end: 20140124
  4. COVERSYL PLUS [Concomitant]
     Route: 065
     Dates: start: 2000
  5. LIPEX [Concomitant]
     Route: 065
  6. DAONIL [Concomitant]
     Route: 065
     Dates: start: 200305
  7. ONBREZ [Concomitant]
     Route: 065
  8. SERETIDE [Concomitant]
     Route: 065
  9. PRAMIN [Concomitant]
     Route: 065
     Dates: start: 201401
  10. BIOTENE [Concomitant]
     Route: 065
     Dates: start: 201401
  11. COLOXYL WITH SENNA [Concomitant]
     Route: 065
     Dates: start: 201401

REACTIONS (1)
  - Infective exacerbation of chronic obstructive airways disease [Recovered/Resolved]
